FAERS Safety Report 5473023-1 (Version None)
Quarter: 2007Q4

REPORT INFORMATION
  Report Type: 
  Country: None (occurrence: None)
  Receive Date: 20071001
  Receipt Date: 20070216
  Transmission Date: 20080405
  Serious: Yes (Other)
  Sender: FDA-Public Use
  Company Number: US-ASTRAZENECA-2007UW03140

PATIENT
  Age: 60 Year
  Sex: Female
  Weight: 52.2 kg

DRUGS (1)
  1. ARIMIDEX [Suspect]
     Indication: BREAST CANCER
     Route: 048
     Dates: start: 20060301, end: 20070201

REACTIONS (2)
  - DISEASE PROGRESSION [None]
  - WEIGHT INCREASED [None]
